FAERS Safety Report 5475771-6 (Version None)
Quarter: 2007Q4

REPORT INFORMATION
  Report Type: 
  Country: None (occurrence: None)
  Receive Date: 20071003
  Receipt Date: 20070927
  Transmission Date: 20080405
  Serious: Yes (Hospitalization)
  Sender: FDA-Public Use
  Company Number: B0488150A

PATIENT
  Age: 71 Year
  Sex: Male

DRUGS (6)
  1. SENSODYNE-F [Suspect]
     Indication: ILL-DEFINED DISORDER
     Dates: start: 20070420, end: 20070804
  2. BRICANYL [Concomitant]
  3. PULMICORT [Concomitant]
  4. SEREVENT [Concomitant]
  5. AMLODIPINE [Concomitant]
  6. RAMIPRIL [Concomitant]

REACTIONS (5)
  - ANAPHYLACTIC SHOCK [None]
  - ANGIOEDEMA [None]
  - HIP SWELLING [None]
  - HYPERSENSITIVITY [None]
  - SWOLLEN TONGUE [None]
